FAERS Safety Report 24743782 (Version 1)
Quarter: 2024Q4

REPORT INFORMATION
  Report Type: Spontaneous
  Country: ES (occurrence: ES)
  Receive Date: 20241217
  Receipt Date: 20241217
  Transmission Date: 20250115
  Serious: Yes (Life-Threatening)
  Sender: RANBAXY
  Company Number: ES-AEMPS-1592772

PATIENT
  Age: 46 Year
  Sex: Female

DRUGS (4)
  1. OMEPRAZOLE [Suspect]
     Active Substance: OMEPRAZOLE
     Indication: Product used for unknown indication
     Dosage: 20.0 MG A-DE
     Route: 048
     Dates: start: 20241107
  2. MAXALT MAX [Concomitant]
     Indication: Malaise
     Dosage: 10.0 MG C/72 HOURS
     Route: 048
     Dates: start: 20231024
  3. DEXKETOPROFEN [Concomitant]
     Active Substance: DEXKETOPROFEN
     Indication: Malaise
     Dosage: 25.0 MG DECOCE
     Route: 048
     Dates: start: 20231023
  4. FLATORIL [Concomitant]
     Indication: Flatulence
     Dosage: 0.5 MG A-DECOCE
     Route: 048
     Dates: start: 20241030

REACTIONS (3)
  - Urticaria [Recovering/Resolving]
  - Dyspnoea [Recovering/Resolving]
  - Tongue oedema [Recovering/Resolving]

NARRATIVE: CASE EVENT DATE: 20241107
